FAERS Safety Report 6414139-2 (Version None)
Quarter: 2009Q4

REPORT INFORMATION
  Report Type: 
  Country: None (occurrence: None)
  Receive Date: 20091022
  Receipt Date: 20091022
  Transmission Date: 20100525
  Serious: Yes (Life-Threatening, Hospitalization)
  Sender: FDA-Public Use
  Company Number: None

PATIENT
  Age: 41 Year
  Sex: Male
  Weight: 102.5129 kg

DRUGS (4)
  1. ABILIFY [Suspect]
     Dosage: 20 MG 1 PER DAY PO
     Route: 048
     Dates: start: 20081006, end: 20090304
  2. PROZAC [Concomitant]
  3. RISPERIDONE [Concomitant]
  4. CYMBALTA [Concomitant]

REACTIONS (6)
  - AKATHISIA [None]
  - ANXIETY [None]
  - CONDITION AGGRAVATED [None]
  - DEPRESSION [None]
  - EXERCISE TOLERANCE DECREASED [None]
  - SUICIDAL IDEATION [None]
